FAERS Safety Report 7714911-2 (Version None)
Quarter: 2011Q3

REPORT INFORMATION
  Report Type: 
  Country: None (occurrence: None)
  Receive Date: 20110829
  Receipt Date: 20110823
  Transmission Date: 20111222
  Serious: Yes (Other)
  Sender: FDA-Public Use
  Company Number: JP-PFIZER INC-2011193771

PATIENT
  Age: 71 Year
  Sex: Female

DRUGS (3)
  1. CLOTIAZEPAM [Suspect]
     Indication: DEPRESSION
  2. ALPRAZOLAM [Suspect]
     Indication: DEPRESSION
     Dosage: UNK
  3. MAPROTILINE [Suspect]
     Indication: DEPRESSION
     Dosage: UNK

REACTIONS (2)
  - ANGLE CLOSURE GLAUCOMA [None]
  - BLINDNESS [None]
